FAERS Safety Report 13659556 (Version 1)
Quarter: 2017Q2

REPORT INFORMATION
  Report Type: Spontaneous
  Country: US (occurrence: US)
  Receive Date: 20170616
  Receipt Date: 20170616
  Transmission Date: 20170830
  Serious: Yes (Life-Threatening)
  Sender: FDA-Public Use
  Company Number: None

PATIENT
  Age: 67 Year
  Sex: Female
  Weight: 107.2 kg

DRUGS (13)
  1. SENNA [Concomitant]
     Active Substance: SENNA LEAF\SENNOSIDES\SENNOSIDES A AND B
  2. CEFAZOLIN [Concomitant]
     Active Substance: CEFAZOLIN
  3. LACTATED RINGERS [Concomitant]
     Active Substance: CALCIUM CHLORIDE\POTASSIUM CHLORIDE\SODIUM CHLORIDE\SODIUM LACTATE
  4. VANC [Concomitant]
  5. HUMALOG [Concomitant]
     Active Substance: INSULIN LISPRO
  6. LIDODERM [Concomitant]
     Active Substance: LIDOCAINE
  7. LIPITOR [Concomitant]
     Active Substance: ATORVASTATIN CALCIUM
  8. HYDROMORPHONE [Suspect]
     Active Substance: HYDROMORPHONE
     Indication: CORONARY ARTERY BYPASS
     Dosage: RECENT  2MG Q4HRS PRN PO
     Route: 048
  9. MORPHINE [Suspect]
     Active Substance: MORPHINE
     Indication: CORONARY ARTERY BYPASS
     Dosage: RECENT  4MG Q2HRS PRN IV
     Route: 042
  10. LASIX [Concomitant]
     Active Substance: FUROSEMIDE
  11. ZOFRAN [Concomitant]
     Active Substance: ONDANSETRON HYDROCHLORIDE
  12. PROTONIX [Concomitant]
     Active Substance: PANTOPRAZOLE SODIUM
  13. APAP [Concomitant]
     Active Substance: ACETAMINOPHEN

REACTIONS (1)
  - Mental status changes [None]

NARRATIVE: CASE EVENT DATE: 20170414
